FAERS Safety Report 4656319-2 (Version None)
Quarter: 2005Q2

REPORT INFORMATION
  Report Type: 
  Country: None (occurrence: None)
  Receive Date: 20050509
  Receipt Date: 20050421
  Transmission Date: 20051028
  Serious: Yes (Hospitalization)
  Sender: FDA-Public Use
  Company Number: CA-JNJFOC-20050405988

PATIENT
  Sex: Female

DRUGS (2)
  1. IMODIUM A-D [Suspect]
     Route: 049
  2. IMODIUM A-D [Suspect]
     Route: 049

REACTIONS (6)
  - CONFUSIONAL STATE [None]
  - DRUG INEFFECTIVE [None]
  - DRY MOUTH [None]
  - GASTROINTESTINAL DISORDER [None]
  - NAUSEA [None]
  - POLLAKIURIA [None]
